FAERS Safety Report 23723759 (Version 1)
Quarter: 2024Q2

REPORT INFORMATION
  Report Type: Report from Study
  Country: BG (occurrence: BG)
  Receive Date: 20240409
  Receipt Date: 20240409
  Transmission Date: 20240716
  Serious: Yes (Other)
  Sender: FDA-Public Use
  Company Number: BG-AMRYT PHARMACEUTICALS DAC-AEGR007023

PATIENT

DRUGS (1)
  1. FILSUVEZ [Suspect]
     Active Substance: BIRCH TRITERPENES
     Indication: Product used for unknown indication
     Dosage: UNK

REACTIONS (3)
  - Wound infection pseudomonas [Unknown]
  - Wound infection staphylococcal [Unknown]
  - Pruritus [Unknown]
